FAERS Safety Report 6045781-9 (Version None)
Quarter: 2009Q1

REPORT INFORMATION
  Report Type: 
  Country: None (occurrence: None)
  Receive Date: 20090121
  Receipt Date: 20081217
  Transmission Date: 20090719
  Serious: Yes (Death, Hospitalization)
  Sender: FDA-Public Use
  Company Number: GB-GILEAD-2007-0014499

PATIENT
  Age: 25 Year
  Sex: Male

DRUGS (7)
  1. VIREAD [Suspect]
     Indication: HIV INFECTION
     Route: 048
     Dates: start: 20030408, end: 20030417
  2. LAMIVUDINE [Suspect]
     Indication: HIV INFECTION
     Dates: start: 20030408, end: 20030417
  3. NEVIRAPINE [Suspect]
     Indication: HIV INFECTION
     Route: 048
     Dates: start: 20030408, end: 20030417
  4. COMBIVIR [Concomitant]
     Indication: HIV INFECTION
     Dates: start: 20030311, end: 20030327
  5. EFAVIRENZ [Concomitant]
     Indication: HIV INFECTION
     Dates: start: 20030311, end: 20030327
  6. SEPTRIN [Concomitant]
     Indication: ANTIFUNGAL PROPHYLAXIS
     Route: 048
     Dates: start: 20030408, end: 20030417
  7. IBUPROFEN [Concomitant]
     Indication: PAIN IN EXTREMITY

REACTIONS (5)
  - CHOLANGITIS [None]
  - HEPATIC FAILURE [None]
  - HEPATOTOXICITY [None]
  - SEPSIS [None]
  - VANISHING BILE DUCT SYNDROME [None]
